FAERS Safety Report 8547088-4 (Version None)
Quarter: 2012Q3

REPORT INFORMATION
  Report Type: 
  Country: None (occurrence: None)
  Receive Date: 20120727
  Receipt Date: 20120210
  Transmission Date: 20120928
  Serious: No
  Sender: FDA-Public Use
  Company Number: US-ASTRAZENECA-2012SE10201

PATIENT
  Age: 38 Year
  Sex: Female

DRUGS (2)
  1. SEROQUEL [Suspect]
     Indication: BIPOLAR DISORDER
     Route: 048
  2. SEROQUEL [Suspect]
     Indication: TACHYPHRENIA
     Route: 048

REACTIONS (3)
  - OFF LABEL USE [None]
  - NASOPHARYNGITIS [None]
  - MALAISE [None]
